FAERS Safety Report 12322518 (Version 2)
Quarter: 2016Q2

REPORT INFORMATION
  Report Type: Spontaneous
  Country: US (occurrence: US)
  Receive Date: 20160502
  Receipt Date: 20160604
  Transmission Date: 20160815
  Serious: No
  Sender: FDA-Public Use
  Company Number: PHEH2016US010201

PATIENT
  Sex: Male

DRUGS (3)
  1. LEVODOPA [Concomitant]
     Active Substance: LEVODOPA
     Indication: PRODUCT USED FOR UNKNOWN INDICATION
     Route: 065
  2. ACETYLSALICYLIC ACID [Concomitant]
     Active Substance: ASPIRIN
     Indication: PRODUCT USED FOR UNKNOWN INDICATION
     Route: 065
  3. EXELON PATCH [Suspect]
     Active Substance: RIVASTIGMINE
     Indication: PARKINSON^S DISEASE
     Dosage: 9.5 MG, QD
     Route: 062

REACTIONS (7)
  - Glaucoma [Unknown]
  - Application site rash [Unknown]
  - Pruritus [Unknown]
  - Haemorrhage [Unknown]
  - Application site vesicles [Unknown]
  - Scratch [Unknown]
  - Dry skin [Unknown]
